FAERS Safety Report 4393303-0 (Version None)
Quarter: 2004Q3

REPORT INFORMATION
  Report Type: 
  Country: None (occurrence: None)
  Receive Date: 20040701
  Receipt Date: 20040610
  Transmission Date: 20050211
  Serious: Yes (Death)
  Sender: FDA-Public Use
  Company Number: GBS040615019

PATIENT
  Age: 47 Year
  Sex: Male

DRUGS (1)
  1. PROZAC [Suspect]
     Indication: DEPRESSION
     Dosage: 20 MG
     Dates: start: 20040217

REACTIONS (15)
  - ABDOMINAL PAIN UPPER [None]
  - ABNORMAL BEHAVIOUR [None]
  - COMPLETED SUICIDE [None]
  - DEPRESSION [None]
  - DRUG LEVEL BELOW THERAPEUTIC [None]
  - EMOTIONAL DISTRESS [None]
  - FEELING ABNORMAL [None]
  - INSOMNIA [None]
  - JOB DISSATISFACTION [None]
  - MALAISE [None]
  - PALLOR [None]
  - RESTLESSNESS [None]
  - SELF-MEDICATION [None]
  - SOCIAL AVOIDANT BEHAVIOUR [None]
  - VOMITING [None]
